FAERS Safety Report 6674495-7 (Version None)
Quarter: 2010Q2

REPORT INFORMATION
  Report Type: 
  Country: None (occurrence: None)
  Receive Date: 20100409
  Receipt Date: 20100218
  Transmission Date: 20101027
  Serious: Yes (Death)
  Sender: FDA-Public Use
  Company Number: US-BAYER-201017829NA

PATIENT
  Sex: Female
  Weight: 61 kg

DRUGS (25)
  1. MAGNEVIST [Suspect]
     Indication: NUCLEAR MAGNETIC RESONANCE IMAGING BRAIN
     Dosage: TOTAL DAILY DOSE: 14 ML
     Dates: start: 20010417, end: 20010417
  2. MAGNEVIST [Suspect]
     Dosage: TOTAL DAILY DOSE: 14 ML
     Dates: start: 20060121, end: 20060121
  3. MAGNEVIST [Suspect]
     Dosage: TOTAL DAILY DOSE: 14 ML
     Dates: start: 20060629, end: 20060629
  4. MAGNEVIST [Suspect]
     Dosage: TOTAL DAILY DOSE: 14 ML
     Dates: start: 20061002, end: 20061002
  5. COUMADIN [Concomitant]
  6. FOSRENOL [Concomitant]
  7. SENSIPAR [Concomitant]
  8. PREDNISONE TAB [Concomitant]
  9. SILDENAFIL [Concomitant]
  10. LABETALOL HCL [Concomitant]
  11. TOPROL-XL [Concomitant]
  12. DIATX [Concomitant]
  13. EPOGEN [Concomitant]
  14. LANTHANUM [Concomitant]
  15. QUINIDINE HCL [Concomitant]
  16. PHOSLO [Concomitant]
  17. QUININE [Concomitant]
  18. CARDIZEM [Concomitant]
  19. AGGRENOX [Concomitant]
  20. ZEMPLAR [Concomitant]
  21. DIGOXIN [Concomitant]
  22. ALTEPLASE [Concomitant]
  23. PARICALCITOL [Concomitant]
  24. EPOGEN [Concomitant]
  25. MIDODRINE HYDROCHLORIDE [Concomitant]

REACTIONS (16)
  - ABASIA [None]
  - ARTHRALGIA [None]
  - JOINT CONTRACTURE [None]
  - JOINT RANGE OF MOTION DECREASED [None]
  - NEPHROGENIC SYSTEMIC FIBROSIS [None]
  - OEDEMA PERIPHERAL [None]
  - PEAU D'ORANGE [None]
  - PRURITUS GENERALISED [None]
  - SKIN BURNING SENSATION [None]
  - SKIN DISCOLOURATION [None]
  - SKIN EXFOLIATION [None]
  - SKIN FIBROSIS [None]
  - SKIN HYPERPIGMENTATION [None]
  - SKIN HYPERTROPHY [None]
  - SKIN PLAQUE [None]
  - SKIN TIGHTNESS [None]
